FAERS Safety Report 5732903-X (Version None)
Quarter: 2008Q2

REPORT INFORMATION
  Report Type: 
  Country: None (occurrence: None)
  Receive Date: 20080509
  Receipt Date: 20080225
  Transmission Date: 20081010
  Serious: No
  Sender: FDA-Public Use
  Company Number: A0711613A

PATIENT
  Age: 61 Year
  Sex: Female

DRUGS (4)
  1. COREG CR [Suspect]
     Dosage: 80MG PER DAY
     Route: 048
     Dates: start: 20080206
  2. LIPITOR [Concomitant]
  3. ASPIRIN [Concomitant]
  4. DIAVAN [Concomitant]

REACTIONS (3)
  - ASTHENIA [None]
  - DIZZINESS [None]
  - WEIGHT LOSS POOR [None]
